FAERS Safety Report 8848205 (Version 1)
Quarter: 2012Q4

REPORT INFORMATION
  Report Type: 
  Country: FR (occurrence: FR)
  Receive Date: 20121018
  Receipt Date: 20121018
  Transmission Date: 20130627
  Serious: Yes (Life-Threatening, Hospitalization, Other)
  Sender: FDA-Public Use
  Company Number: FR-009507513-1104FRA00037

PATIENT
  Age: 46 Year
  Sex: Female
  Weight: 65 kg

DRUGS (3)
  1. ISENTRESS [Suspect]
     Indication: HIV INFECTION
     Dosage: 400 mg, bid
     Route: 048
     Dates: start: 20110115, end: 20110308
  2. KALETRA [Concomitant]
     Indication: HIV INFECTION
     Dosage: 100 mg, qid
     Route: 048
  3. VIREAD [Concomitant]
     Indication: HIV INFECTION
     Dosage: 245 mg, qd
     Route: 048

REACTIONS (2)
  - Drug reaction with eosinophilia and systemic symptoms [Recovered/Resolved]
  - Renal failure acute [Recovering/Resolving]
